FAERS Safety Report 12094238 (Version 1)
Quarter: 2016Q1

REPORT INFORMATION
  Report Type: Spontaneous
  Country: HU (occurrence: HU)
  Receive Date: 20160219
  Receipt Date: 20160219
  Transmission Date: 20160526
  Serious: Yes (Death, Other)
  Sender: FDA-Public Use
  Company Number: HU-ACTELION-A-CH2016-131311

PATIENT
  Age: 61 Year
  Sex: Male

DRUGS (1)
  1. TRACLEER [Suspect]
     Active Substance: BOSENTAN
     Indication: PULMONARY ARTERIAL HYPERTENSION
     Dosage: 125 MG, BID
     Route: 048
     Dates: start: 20151205, end: 20160207

REACTIONS (9)
  - Hypotonia [Fatal]
  - Metabolic acidosis [Fatal]
  - Resuscitation [Fatal]
  - Laryngeal stenosis [Not Recovered/Not Resolved]
  - C-reactive protein increased [Not Recovered/Not Resolved]
  - Septic shock [Fatal]
  - Circulatory collapse [Fatal]
  - Purulent discharge [Not Recovered/Not Resolved]
  - Postoperative abscess [Not Recovered/Not Resolved]

NARRATIVE: CASE EVENT DATE: 201601
